FAERS Safety Report 11120324 (Version 1)
Quarter: 2015Q2

REPORT INFORMATION
  Report Type: Spontaneous
  Country: GB (occurrence: GB)
  Receive Date: 20150518
  Receipt Date: 20150518
  Transmission Date: 20150821
  Serious: Yes (Disabling, Congenital Anomaly)
  Sender: FDA-Public Use
  Company Number: GB-ABBVIE-15P-167-1391104-00

PATIENT
  Sex: Male
  Weight: 3.4 kg

DRUGS (3)
  1. ATAZANAVIR [Suspect]
     Active Substance: ATAZANAVIR
     Indication: MATERNAL EXPOSURE TIMING UNSPECIFIED
     Route: 064
  2. NORVIR [Suspect]
     Active Substance: RITONAVIR
     Indication: MATERNAL EXPOSURE TIMING UNSPECIFIED
     Route: 064
  3. KIVEXA [Suspect]
     Active Substance: ABACAVIR SULFATE\LAMIVUDINE
     Indication: MATERNAL EXPOSURE TIMING UNSPECIFIED
     Route: 064

REACTIONS (6)
  - Congenital ureterocele [Not Recovered/Not Resolved]
  - Foetal exposure during pregnancy [Unknown]
  - Foetal cystic hygroma [Recovered/Resolved]
  - Umbilical cord vascular disorder [Recovered/Resolved]
  - Congenital central nervous system anomaly [Unknown]
  - Kidney duplex [Not Recovered/Not Resolved]
